FAERS Safety Report 6521594-6 (Version None)
Quarter: 2009Q4

REPORT INFORMATION
  Report Type: 
  Country: None (occurrence: None)
  Receive Date: 20091230
  Receipt Date: 20091221
  Transmission Date: 20100525
  Serious: Yes (Other)
  Sender: FDA-Public Use
  Company Number: CA-JNJFOC-20091206627

PATIENT
  Age: 70 Year
  Sex: Male
  Weight: 88.45 kg

DRUGS (13)
  1. TRAMADOL HCL [Suspect]
     Indication: DRUG USE FOR UNKNOWN INDICATION
     Route: 048
  2. ACETAMINOPHEN [Concomitant]
  3. ALLOPURINOL [Concomitant]
  4. AVALIDE [Concomitant]
  5. DIAZEPAM [Concomitant]
  6. INSULIN [Concomitant]
  7. LIPITOR [Concomitant]
  8. NEXIUM [Concomitant]
  9. NOVOLIN GE [Concomitant]
  10. NOVOQUININE [Concomitant]
  11. NOVORAPID [Concomitant]
  12. RIVASA [Concomitant]
  13. VERAPAMIL [Concomitant]

REACTIONS (6)
  - AFFECT LABILITY [None]
  - DECREASED INTEREST [None]
  - DEPRESSION [None]
  - NAUSEA [None]
  - NEUROPATHY PERIPHERAL [None]
  - PAIN IN EXTREMITY [None]
